FAERS Safety Report 7629487-8 (Version None)
Quarter: 2011Q3

REPORT INFORMATION
  Report Type: 
  Country: None (occurrence: None)
  Receive Date: 20110722
  Receipt Date: 20110712
  Transmission Date: 20111222
  Serious: Yes (Life-Threatening, Hospitalization, Other)
  Sender: FDA-Public Use
  Company Number: US-ACTELION-A-NJ2011-48346

PATIENT

DRUGS (5)
  1. EPOPROSTENOL SODIUM [Suspect]
     Dosage: 6.5 NG/KG, PER MIN
     Route: 041
     Dates: start: 20110403, end: 20110501
  2. REVATIO [Concomitant]
  3. COUMADIN [Concomitant]
  4. EPOPROSTENOL SODIUM [Suspect]
     Indication: PULMONARY ARTERIAL HYPERTENSION
     Dosage: 15 NG/KG, PER MIN
     Route: 041
     Dates: start: 20110101
  5. EPOPROSTENOL SODIUM [Suspect]
     Dosage: 10 NG/KG, PER MIN
     Route: 041
     Dates: start: 20110501, end: 20110101

REACTIONS (10)
  - DYSPNOEA [None]
  - WEIGHT BEARING DIFFICULTY [None]
  - INJECTION SITE ERYTHEMA [None]
  - MUSCULOSKELETAL PAIN [None]
  - COUGH [None]
  - JOINT RANGE OF MOTION DECREASED [None]
  - PULMONARY EMBOLISM [None]
  - DEVICE RELATED INFECTION [None]
  - PAIN IN JAW [None]
  - CLOSTRIDIAL INFECTION [None]
